APPROVED DRUG PRODUCT: CEFUROXIME SODIUM
Active Ingredient: CEFUROXIME SODIUM
Strength: EQ 1.5GM BASE/VIAL
Dosage Form/Route: INJECTABLE;INJECTION
Application: A065483 | Product #002
Applicant: HOSPIRA INC
Approved: Oct 15, 2008 | RLD: No | RS: No | Type: DISCN